FAERS Safety Report 25889328 (Version 1)
Quarter: 2025Q4

REPORT INFORMATION
  Report Type: Spontaneous
  Country: CH (occurrence: CH)
  Receive Date: 20251007
  Receipt Date: 20251007
  Transmission Date: 20260119
  Serious: Yes (Other)
  Sender: ROCHE
  Company Number: None

PATIENT
  Age: 53 Year
  Sex: Female

DRUGS (1)
  1. HERCEPTIN [Suspect]
     Active Substance: TRASTUZUMAB
     Indication: HER2 positive breast cancer
     Dosage: DOSE- 1 TOTAL
     Route: 065
     Dates: start: 20190425, end: 20200423

REACTIONS (31)
  - Impaired work ability [Recovered/Resolved]
  - Headache [Recovered/Resolved]
  - Oral pain [Recovered/Resolved]
  - Muscular weakness [Recovered/Resolved]
  - Tinnitus [Recovered/Resolved]
  - Arthralgia [Recovered/Resolved]
  - Dysgeusia [Recovered/Resolved]
  - Visual impairment [Recovered/Resolved]
  - Sleep disorder [Recovered/Resolved]
  - Dysuria [Recovered/Resolved]
  - Blood pressure increased [Recovered/Resolved]
  - Weight increased [Unknown]
  - Fatigue [Recovered/Resolved]
  - Abdominal pain [Recovered/Resolved]
  - Dyspnoea [Recovered/Resolved]
  - Alopecia [Unknown]
  - Micturition urgency [Recovered/Resolved]
  - Hot flush [Recovered/Resolved]
  - Gait disturbance [Recovered/Resolved]
  - Sensory level abnormal [Recovered/Resolved]
  - Diarrhoea [Recovered/Resolved]
  - Weight decreased [Unknown]
  - Rash [Recovered/Resolved]
  - Disturbance in attention [Recovered/Resolved]
  - Cough [Recovered/Resolved]
  - Dysphagia [Recovered/Resolved]
  - Pain [Recovered/Resolved]
  - Nausea [Recovered/Resolved]
  - Restlessness [Recovered/Resolved]
  - Decreased appetite [Recovered/Resolved]
  - Somnolence [Recovered/Resolved]

NARRATIVE: CASE EVENT DATE: 20190426
